FAERS Safety Report 13648217 (Version 1)
Quarter: 2017Q2

REPORT INFORMATION
  Report Type: Spontaneous
  Country: FR (occurrence: FR)
  Receive Date: 20170613
  Receipt Date: 20170613
  Transmission Date: 20170830
  Serious: Yes (Other)
  Sender: FDA-Public Use
  Company Number: FR-BAYER-2017-105936

PATIENT
  Age: 46 Year
  Sex: Female

DRUGS (2)
  1. MIRENA [Suspect]
     Active Substance: LEVONORGESTREL
     Dosage: 20 MCG/24HR, CONT
     Dates: start: 20161107
  2. MIRENA [Suspect]
     Active Substance: LEVONORGESTREL
     Dosage: 20 MCG/24HR, CONT
     Dates: start: 2011

REACTIONS (10)
  - Affective disorder [None]
  - Hot flush [None]
  - Arrhythmia [None]
  - Bipolar disorder [None]
  - Large intestine perforation [None]
  - Asthenia [None]
  - Vision blurred [None]
  - Extrasystoles [None]
  - Abdominal distension [None]
  - Dizziness [None]

NARRATIVE: CASE EVENT DATE: 2013
